FAERS Safety Report 8989840 (Version 1)
Quarter: 2012Q4

REPORT INFORMATION
  Report Type: 
  Country: GB (occurrence: GB)
  Receive Date: 20121228
  Receipt Date: 20121228
  Transmission Date: 20130627
  Serious: Yes (Other)
  Sender: FDA-Public Use
  Company Number: GB-TEVA-377157ISR

PATIENT
  Age: 19 Year
  Sex: Male
  Weight: 70.76 kg

DRUGS (1)
  1. CITALOPRAM [Suspect]

REACTIONS (2)
  - Obsessive-compulsive disorder [Unknown]
  - Mental disorder [Unknown]
